FAERS Safety Report 8140269-3 (Version None)
Quarter: 2012Q1

REPORT INFORMATION
  Report Type: 
  Country: None (occurrence: None)
  Receive Date: 20120216
  Receipt Date: 20120214
  Transmission Date: 20120608
  Serious: Yes (Hospitalization)
  Sender: FDA-Public Use
  Company Number: FR-SP-2012-01808

PATIENT
  Sex: Male

DRUGS (1)
  1. IMMUCYST [Suspect]
     Indication: BLADDER CANCER
     Dosage: 1 TO 3 INSTILLATIONS/6 MONTHS
     Route: 043
     Dates: start: 20100201

REACTIONS (3)
  - LIVER DISORDER [None]
  - INTERSTITIAL LUNG DISEASE [None]
  - BOVINE TUBERCULOSIS [None]
